FAERS Safety Report 8426588-1 (Version None)
Quarter: 2012Q2

REPORT INFORMATION
  Report Type: 
  Country: None (occurrence: None)
  Receive Date: 20120604
  Receipt Date: 20120525
  Transmission Date: 20120825
  Serious: Yes (Hospitalization)
  Sender: FDA-Public Use
  Company Number: 2012SP0233333

PATIENT
  Age: 45 Year
  Sex: Male
  Weight: 79 kg

DRUGS (5)
  1. VICTRELIS [Suspect]
     Indication: HEPATITIS C
     Dosage: 800 MG;TID;
     Dates: start: 20110614
  2. COPEGUS [Suspect]
     Indication: HEPATITIS C
     Dosage: 1000 MG;QD;
     Dates: start: 20110517
  3. NEORECORMON [Concomitant]
  4. NEUPOGEN [Concomitant]
  5. VIRAFERONPEG [Suspect]
     Indication: HEPATITIS C
     Dosage: 1 MCG/KG;QW;
     Dates: start: 20110517

REACTIONS (1)
  - CHOLECYSTITIS [None]
